FAERS Safety Report 21794111 (Version 2)
Quarter: 2023Q1

REPORT INFORMATION
  Report Type: Report from Study
  Country: BR (occurrence: BR)
  Receive Date: 20221229
  Receipt Date: 20230110
  Transmission Date: 20230418
  Serious: Yes (Hospitalization)
  Sender: FDA-Public Use
  Company Number: BR-Merck Healthcare KGaA-9373752

PATIENT
  Age: 56 Year
  Sex: Male

DRUGS (5)
  1. CETUXIMAB [Suspect]
     Active Substance: CETUXIMAB
     Indication: Tonsil cancer metastatic
     Dosage: UNK UNK, WEEKLY (1/W)
     Route: 065
  2. CETUXIMAB [Suspect]
     Active Substance: CETUXIMAB
     Dosage: UNK UNK, WEEKLY (1/W)
     Route: 065
     Dates: start: 20221229
  3. DOCETAXEL [Suspect]
     Active Substance: DOCETAXEL
     Indication: Tonsil cancer metastatic
     Dosage: UNK UNK, UNKNOWN
     Route: 065
  4. CISPLATIN [Suspect]
     Active Substance: CISPLATIN
     Indication: Tonsil cancer metastatic
     Dosage: UNK UNK, UNKNOWN
     Route: 065
  5. FLUOROURACIL [Suspect]
     Active Substance: FLUOROURACIL
     Indication: Tonsil cancer metastatic
     Dosage: UNK UNK, UNKNOWN
     Route: 065

REACTIONS (9)
  - Body temperature decreased [Recovered/Resolved]
  - Feeding disorder [Recovered/Resolved]
  - Abdominal pain upper [Recovered/Resolved]
  - Leukopenia [Recovered/Resolved]
  - Dehydration [Recovered/Resolved]
  - Vomiting [Recovered/Resolved]
  - Nausea [Recovering/Resolving]
  - Stomatitis [Recovered/Resolved]
  - Malaise [Recovered/Resolved]

NARRATIVE: CASE EVENT DATE: 20221101
